FAERS Safety Report 6803332-2 (Version None)
Quarter: 2010Q2

REPORT INFORMATION
  Report Type: 
  Country: None (occurrence: None)
  Receive Date: 20100628
  Receipt Date: 20100616
  Transmission Date: 20101027
  Serious: Yes (Other)
  Sender: FDA-Public Use
  Company Number: US-ROCHE-640641

PATIENT
  Sex: Male
  Weight: 1 kg

DRUGS (15)
  1. CELLCEPT [Suspect]
     Indication: LUPUS NEPHRITIS
     Route: 064
     Dates: start: 20010501
  2. CELLCEPT [Suspect]
     Route: 064
     Dates: start: 20030919, end: 20031015
  3. CELLCEPT [Suspect]
     Route: 064
     Dates: start: 20031219
  4. CELLCEPT [Suspect]
     Dosage: DISCONTINUED DUE TO PREGNANCY
     Route: 064
     Dates: end: 20040209
  5. CELLCEPT [Suspect]
     Route: 064
     Dates: start: 20040820
  6. CELLCEPT [Suspect]
     Dosage: DISCONTINUED FOR 2 MONTHS
     Route: 064
  7. PREDNISONE [Suspect]
     Indication: LUPUS NEPHRITIS
     Dosage: RECEIVED THROUGHOUT PREGNANCY AT DIFFERENT DOSAGES
  8. LISINOPRIL [Suspect]
     Indication: DRUG USE FOR UNKNOWN INDICATION
     Dosage: DISCONTINUED IN EARLY PREGNANCY.
  9. HYDROXYCHLOROQUINE [Suspect]
     Indication: DRUG USE FOR UNKNOWN INDICATION
     Dosage: DISCONTINUED IN EARLY PREGNANCY.
  10. IRON [Concomitant]
  11. VITAMIN TAB [Concomitant]
     Dosage: PRENATAL VITAMINS.
  12. CALCIUM CARBONATE [Concomitant]
  13. VITAMINE D [Concomitant]
     Dosage: DRUG; VITAMIN D.
  14. ACETAMINOPHEN [Concomitant]
  15. ZESTRIL [Concomitant]

REACTIONS (13)
  - ATTENTION DEFICIT/HYPERACTIVITY DISORDER [None]
  - CONDUCTIVE DEAFNESS [None]
  - CONGENITAL CYTOMEGALOVIRUS INFECTION [None]
  - DEVELOPMENTAL DELAY [None]
  - EXTERNAL AUDITORY CANAL ATRESIA [None]
  - FAILURE TO THRIVE [None]
  - FOETAL GROWTH RETARDATION [None]
  - HYPERBILIRUBINAEMIA [None]
  - INGUINAL HERNIA [None]
  - MICROCEPHALY [None]
  - MICROTIA [None]
  - SPEECH DISORDER [None]
  - THROMBOCYTOPENIA [None]
